FAERS Safety Report 5019520-4 (Version None)
Quarter: 2006Q2

REPORT INFORMATION
  Report Type: 
  Country: None (occurrence: None)
  Receive Date: 20060530
  Receipt Date: 20060511
  Transmission Date: 20061013
  Serious: Yes (Hospitalization)
  Sender: FDA-Public Use
  Company Number: DSA_28208_2006

PATIENT
  Age: 80 Year
  Sex: Male

DRUGS (10)
  1. ENALAPRIL MALEATE [Suspect]
     Indication: CARDIAC FAILURE
     Dosage: 1 TAB Q DAY PO
     Route: 048
     Dates: start: 20050706, end: 20050713
  2. SPIRONOLACTONE [Suspect]
     Indication: CARDIAC FAILURE
     Dosage: DF PO
     Route: 048
     Dates: start: 20050709, end: 20050713
  3. NOVALGIN /00039501/ [Suspect]
     Indication: PAIN
     Dosage: 2 TAB Q DAY PO
     Route: 048
     Dates: end: 20050714
  4. MARCUMAR [Concomitant]
  5. LOCOL [Concomitant]
  6. PANTOZOL [Concomitant]
  7. NOCTAMID [Concomitant]
  8. AQUAPHOR [Concomitant]
  9. FUROSEMIDE [Concomitant]
  10. IBUPROFEN [Concomitant]

REACTIONS (1)
  - PANCYTOPENIA [None]
